FAERS Safety Report 8829968 (Version 4)
Quarter: 2013Q4

REPORT INFORMATION
  Report Type: Report from Study
  Country: BR (occurrence: BR)
  Receive Date: 20121008
  Receipt Date: 20131112
  Transmission Date: 20140711
  Serious: Yes (Other)
  Sender: FDA-Public Use
  Company Number: PHHY2012BR088203

PATIENT
  Age: 57 Year
  Sex: Female

DRUGS (5)
  1. ACLASTA [Suspect]
     Indication: OSTEOPOROSIS
     Dosage: 5MG/100ML PER YEAR
     Route: 042
     Dates: start: 20120710
  2. CALCIUM [Concomitant]
     Indication: OSTEOPOROSIS
     Dosage: 1 TABLET PER DAY
     Route: 048
  3. VITAMIN D [Concomitant]
     Indication: OSTEOPOROSIS
     Dosage: 1 TABLET PER DAY
     Route: 048
  4. BENICAR [Concomitant]
     Indication: HYPERTENSION
     Dosage: 1 TABLET PER DAY
     Route: 048
     Dates: start: 2000
  5. T4 [Concomitant]
     Indication: HYPOTHYROIDISM
     Dosage: 1 DF PER DAY

REACTIONS (14)
  - Osteonecrosis [Recovering/Resolving]
  - Bone lesion [Recovering/Resolving]
  - Enamel anomaly [Recovering/Resolving]
  - Bone marrow ischaemia [Not Recovered/Not Resolved]
  - Bone marrow necrosis [Not Recovered/Not Resolved]
  - Uveitis [Recovering/Resolving]
  - Eye pain [Recovered/Resolved]
  - Eye swelling [Recovered/Resolved]
  - Ocular hyperaemia [Recovered/Resolved]
  - Eye movement disorder [Recovered/Resolved]
  - Plantar fasciitis [Recovered/Resolved]
  - Myalgia [Recovered/Resolved]
  - Pain [Recovered/Resolved]
  - Bone pain [Not Recovered/Not Resolved]
